FAERS Safety Report 10308610 (Version 1)
Quarter: 2014Q3

REPORT INFORMATION
  Report Type: Spontaneous
  Country: SG (occurrence: SG)
  Receive Date: 20140716
  Receipt Date: 20140716
  Transmission Date: 20150326
  Serious: Yes (Hospitalization)
  Sender: FDA-Public Use
  Company Number: PHHY2014SG086383

PATIENT
  Age: 52 Year
  Sex: Female

DRUGS (4)
  1. CARBOPLATIN. [Suspect]
     Active Substance: CARBOPLATIN
     Indication: INVASIVE DUCTAL BREAST CARCINOMA
  2. FILGRASTIM [Concomitant]
     Active Substance: FILGRASTIM
     Indication: INVASIVE DUCTAL BREAST CARCINOMA
  3. TRASTUZUMAB [Suspect]
     Active Substance: TRASTUZUMAB
     Indication: INVASIVE DUCTAL BREAST CARCINOMA
  4. DOCETAXEL [Suspect]
     Active Substance: DOCETAXEL
     Indication: INVASIVE DUCTAL BREAST CARCINOMA

REACTIONS (14)
  - Anxiety [Recovered/Resolved]
  - Screaming [Recovered/Resolved]
  - Speech disorder [Recovered/Resolved]
  - Feeling abnormal [Recovered/Resolved]
  - Affect lability [Recovered/Resolved]
  - Crying [Recovered/Resolved]
  - Depressed mood [Recovered/Resolved]
  - Thought blocking [Recovered/Resolved]
  - Emotional disorder [Recovered/Resolved]
  - Chest discomfort [Recovered/Resolved]
  - Dyspnoea [Recovered/Resolved]
  - Inappropriate affect [Recovered/Resolved]
  - Discomfort [Recovered/Resolved]
  - Fear [Recovered/Resolved]
